FAERS Safety Report 6884599-1 (Version None)
Quarter: 2010Q3

REPORT INFORMATION
  Report Type: 
  Country: None (occurrence: None)
  Receive Date: 20100729
  Receipt Date: 20071001
  Transmission Date: 20110219
  Serious: Yes (Hospitalization, Other)
  Sender: FDA-Public Use
  Company Number: US-PFIZER INC-2007056158

PATIENT
  Sex: Female
  Weight: 63.5 kg

DRUGS (8)
  1. CELEBREX [Suspect]
     Indication: PAIN
     Route: 048
     Dates: start: 19991214, end: 20020301
  2. IBUPROFEN TABLETS [Concomitant]
  3. NAPROXEN [Concomitant]
  4. ACETYLSALICYLIC ACID SRT [Concomitant]
  5. CODEINE [Concomitant]
  6. DEMEROL [Concomitant]
  7. MORPHINE [Concomitant]
  8. ACETAMINOPHEN [Concomitant]

REACTIONS (1)
  - CEREBROVASCULAR ACCIDENT [None]
